FAERS Safety Report 14099743 (Version 1)
Quarter: 2017Q4

REPORT INFORMATION
  Report Type: Spontaneous
  Country: US (occurrence: US)
  Receive Date: 20171017
  Receipt Date: 20171017
  Transmission Date: 20180321
  Serious: No
  Sender: FDA-Public Use
  Company Number: US-US WORLDMEDS, LLC-USW201708-001156

PATIENT
  Sex: Male

DRUGS (1)
  1. XADAGO [Suspect]
     Active Substance: SAFINAMIDE MESYLATE
     Indication: PARKINSON^S DISEASE

REACTIONS (3)
  - Condition aggravated [Recovered/Resolved]
  - Oromandibular dystonia [Recovered/Resolved]
  - Ataxia [Recovered/Resolved]
